FAERS Safety Report 10196944 (Version 1)
Quarter: 2014Q2

REPORT INFORMATION
  Report Type: Spontaneous
  Country: PL (occurrence: PL)
  Receive Date: 20140527
  Receipt Date: 20140527
  Transmission Date: 20141212
  Serious: Yes (Other)
  Sender: FDA-Public Use
  Company Number: PL-ACTAVIS-2014-10639

PATIENT
  Age: 75 Year
  Sex: Female
  Weight: 64 kg

DRUGS (1)
  1. PACLITAXEL (UNKNOWN) [Suspect]
     Indication: NEOPLASM MALIGNANT
     Dosage: 121 MG, UNKNOWN ( FOR MALIGNANT NEOPLASM OF OTHER CONNECTIVE AND SOFT TISSUE)
     Route: 042
     Dates: start: 20140120, end: 20140217

REACTIONS (1)
  - Anaemia [Recovering/Resolving]
